FAERS Safety Report 13755782 (Version 1)
Quarter: 2017Q3

REPORT INFORMATION
  Report Type: Spontaneous
  Country: US (occurrence: US)
  Receive Date: 20170714
  Receipt Date: 20170714
  Transmission Date: 20171127
  Serious: No
  Sender: FDA-Public Use
  Company Number: US-PFIZER INC-2017302818

PATIENT
  Sex: Male

DRUGS (2)
  1. VIAGRA [Suspect]
     Active Substance: SILDENAFIL CITRATE
     Dosage: 100 MG, UNK
  2. VIAGRA [Suspect]
     Active Substance: SILDENAFIL CITRATE
     Dosage: 50 MG, UNK (7 PM)

REACTIONS (6)
  - Intentional product misuse [Unknown]
  - Suspected counterfeit product [Unknown]
  - Drug effect incomplete [Unknown]
  - Drug ineffective [Unknown]
  - Drug effect delayed [Unknown]
  - Expired product administered [Unknown]
